FAERS Safety Report 5740354-7 (Version None)
Quarter: 2008Q2

REPORT INFORMATION
  Report Type: 
  Country: None (occurrence: None)
  Receive Date: 20080516
  Receipt Date: 20080509
  Transmission Date: 20081010
  Serious: Yes (Hospitalization)
  Sender: FDA-Public Use
  Company Number: JP-ABBOTT-08P-087-0442998-00

PATIENT
  Sex: Male

DRUGS (5)
  1. KALETRA [Suspect]
     Indication: HIV INFECTION
     Route: 048
     Dates: start: 20061101
  2. KALETRA [Suspect]
     Indication: HIV INFECTION
     Route: 048
     Dates: start: 20060809, end: 20061031
  3. LAMIVUDINE + ZIDOVUDINE [Suspect]
     Indication: HIV INFECTION
     Route: 048
     Dates: start: 20060809
  4. PENTAMIDINE ISETHIONATE [Concomitant]
     Indication: PNEUMONIA
     Route: 055
     Dates: start: 20060617
  5. PENTAMIDINE ISETHIONATE [Concomitant]
     Indication: PROPHYLAXIS

REACTIONS (2)
  - HERPES ZOSTER [None]
  - IMMUNE RECONSTITUTION SYNDROME [None]
